FAERS Safety Report 7416838-2 (Version None)
Quarter: 2011Q1

REPORT INFORMATION
  Report Type: 
  Country: None (occurrence: None)
  Receive Date: 20110302
  Receipt Date: 20101206
  Transmission Date: 20110831
  Serious: No
  Sender: FDA-Public Use
  Company Number: 022460

PATIENT
  Sex: Female
  Weight: 84 kg

DRUGS (12)
  1. ACYCLOVIR [Concomitant]
  2. IMODIUM [Concomitant]
  3. ANUCORT-HC [Concomitant]
  4. DEXLANSOPRAZOLE [Concomitant]
  5. VITAMIN B 12 LICHTENSTEIN [Concomitant]
  6. MERCAPTOPURINE [Concomitant]
  7. CYMBALTA [Concomitant]
  8. HYDROCODONE BITARTRATE [Concomitant]
  9. XANAX [Concomitant]
  10. CIMZIA [Suspect]
     Indication: CROHN'S DISEASE
     Dosage: 400 MG 1X/4 WEEKS SUBCUTANEOUS
     Route: 058
     Dates: start: 20100716
  11. METOPROLOL SUCCINATE [Concomitant]
  12. WELLBUTRIN [Concomitant]

REACTIONS (6)
  - NASAL DISCOMFORT [None]
  - INJECTION SITE REACTION [None]
  - SINUSITIS [None]
  - EPISTAXIS [None]
  - BACK PAIN [None]
  - FATIGUE [None]
